FAERS Safety Report 5322674-3 (Version None)
Quarter: 2007Q2

REPORT INFORMATION
  Report Type: 
  Country: None (occurrence: None)
  Receive Date: 20070507
  Receipt Date: 20070425
  Transmission Date: 20071010
  Serious: Yes (Other)
  Sender: FDA-Public Use
  Company Number: THYM-11415

PATIENT

DRUGS (1)
  1. THYMOGLOBULIN [Suspect]
     Indication: TRANSPLANT

REACTIONS (1)
  - THROMBOTIC MICROANGIOPATHY [None]
